FAERS Safety Report 24828416 (Version 6)
Quarter: 2025Q1

REPORT INFORMATION
  Report Type: Spontaneous
  Country: CA (occurrence: CA)
  Receive Date: 20250110
  Receipt Date: 20250326
  Transmission Date: 20250409
  Serious: Yes (Hospitalization)
  Sender: AMGEN
  Company Number: CA-AMGEN-CANSP2024254983

PATIENT
  Sex: Male
  Weight: 92 kg

DRUGS (1)
  1. ARANESP [Suspect]
     Active Substance: DARBEPOETIN ALFA
     Indication: Nephrogenic anaemia
     Dosage: 300 MICROGRAM, QWK
     Route: 058

REACTIONS (2)
  - Parvovirus infection [Unknown]
  - Off label use [Unknown]
